FAERS Safety Report 4284408-3 (Version None)
Quarter: 2004Q1

REPORT INFORMATION
  Report Type: 
  Country: None (occurrence: None)
  Receive Date: 20040130
  Receipt Date: 20040130
  Transmission Date: 20041129
  Serious: Yes (Hospitalization)
  Sender: FDA-Public Use
  Company Number: None

PATIENT
  Age: 58 Year
  Sex: Male
  Weight: 95.709 kg

DRUGS (5)
  1. TESTOSTERONE [Suspect]
     Indication: ERECTILE DYSFUNCTION
     Dosage: IM 250MG Q 2 WEEKS
     Route: 030
  2. FLUOXETINE [Suspect]
     Dosage: 1 PO Q WEEK
  3. GABAPENTIN [Concomitant]
  4. CLOPIDOGREL BISULFATE [Concomitant]
  5. DIGOXIN [Concomitant]

REACTIONS (1)
  - PRIAPISM [None]
